FAERS Safety Report 6682509-3 (Version None)
Quarter: 2010Q2

REPORT INFORMATION
  Report Type: 
  Country: None (occurrence: None)
  Receive Date: 20100415
  Receipt Date: 20100407
  Transmission Date: 20101027
  Serious: Yes (Other)
  Sender: FDA-Public Use
  Company Number: DE-NOVOPROD-291282

PATIENT
  Sex: Male
  Weight: 130 kg

DRUGS (8)
  1. VICTOZA [Suspect]
     Indication: DRUG USE FOR UNKNOWN INDICATION
     Dosage: .6 MG, QD
     Route: 058
     Dates: start: 20090726, end: 20090831
  2. MEXITIL [Concomitant]
     Dosage: 200 MG, BID
     Route: 048
     Dates: end: 20090830
  3. CARVEDILOL [Concomitant]
     Dosage: 25 MG, TID
     Route: 048
  4. RAMIPRIL [Concomitant]
     Dosage: 10 MG, QD
     Route: 048
  5. MAGNESIUM [Concomitant]
     Dosage: 1 UNK, BID
     Route: 048
  6. DIGITOXIN TAB [Concomitant]
     Dosage: .07 MG, QD
     Route: 048
  7. CANDESARTAN [Concomitant]
     Dosage: 16 MG, QD
     Route: 048
  8. OMEPRAZOL                          /00661201/ [Concomitant]
     Dosage: 80 MG, QD
     Route: 048

REACTIONS (2)
  - IMPAIRED GASTRIC EMPTYING [None]
  - REFLUX OESOPHAGITIS [None]
